FAERS Safety Report 8261963-X (Version None)
Quarter: 2012Q2

REPORT INFORMATION
  Report Type: 
  Country: None (occurrence: None)
  Receive Date: 20120405
  Receipt Date: 20120328
  Transmission Date: 20120825
  Serious: Yes (Hospitalization)
  Sender: FDA-Public Use
  Company Number: US-ASTRAZENECA-2011SE51963

PATIENT
  Age: 51 Year
  Sex: Male

DRUGS (3)
  1. TOPROL-XL [Suspect]
     Dosage: GENERIC
     Route: 048
  2. TOPROL-XL [Suspect]
     Route: 048
  3. CRESTOR [Suspect]
     Route: 048

REACTIONS (2)
  - HERNIA [None]
  - ADVERSE DRUG REACTION [None]
